FAERS Safety Report 7560013-8 (Version None)
Quarter: 2011Q2

REPORT INFORMATION
  Report Type: 
  Country: None (occurrence: None)
  Receive Date: 20110621
  Receipt Date: 20110610
  Transmission Date: 20111010
  Serious: Yes (Other)
  Sender: FDA-Public Use
  Company Number: PHHY2011US40215

PATIENT
  Sex: Male

DRUGS (6)
  1. GILENYA [Suspect]
     Indication: MULTIPLE SCLEROSIS
     Dosage: 0.5 MG, UNK
     Dates: start: 20110413
  2. AMINOPYRIDINE [Concomitant]
     Dosage: UNK
  3. PROVIGIL [Concomitant]
  4. SILODOSIN [Concomitant]
  5. SIMVASTATIN [Concomitant]
  6. AMANTADINE HCL [Concomitant]

REACTIONS (3)
  - LOSS OF CONSCIOUSNESS [None]
  - DIZZINESS [None]
  - FATIGUE [None]
